FAERS Safety Report 4352770-9 (Version None)
Quarter: 2004Q2

REPORT INFORMATION
  Report Type: 
  Country: None (occurrence: None)
  Receive Date: 20040504
  Receipt Date: 20040423
  Transmission Date: 20050107
  Serious: Yes (Hospitalization)
  Sender: FDA-Public Use
  Company Number: GB-ROCHE-365508

PATIENT
  Age: 67 Year
  Sex: Male
  Weight: 66 kg

DRUGS (10)
  1. CAPECITABINE [Suspect]
     Indication: COLORECTAL CANCER METASTATIC
     Dosage: INTERMITTENT THERAPY:  TWO WEEKS OF TREATMENT FOLLOWED BY ONE WEEK REST.
     Route: 048
     Dates: start: 20040414, end: 20040420
  2. CAPECITABINE [Suspect]
     Dosage: INTERMITTENT THERAPY:  TWO WEEKS OF TREATMENT FOLLOWED BY ONE WEEK REST.
     Route: 048
     Dates: start: 20040423
  3. OXALIPLATIN [Suspect]
     Indication: COLORECTAL CANCER METASTATIC
     Route: 042
     Dates: start: 20040414
  4. TEMAZEPAM [Concomitant]
  5. PHOLCODINE [Concomitant]
  6. DOMPERIDONE [Concomitant]
     Dates: start: 20040414
  7. CHLORHEXIDINE [Concomitant]
     Dates: start: 20040414
  8. SUCRALFATE [Concomitant]
     Dates: start: 20040421
  9. DOCUSATE [Concomitant]
     Dates: start: 20040421
  10. CO-DANTHRAMER [Concomitant]
     Dates: start: 20040422

REACTIONS (7)
  - CONSTIPATION [None]
  - COUGH [None]
  - DYSPEPSIA [None]
  - GASTROOESOPHAGEAL REFLUX DISEASE [None]
  - PARAESTHESIA [None]
  - PYREXIA [None]
  - VOMITING [None]
